FAERS Safety Report 10413304 (Version 1)
Quarter: 2014Q3

REPORT INFORMATION
  Report Type: Spontaneous
  Country: CN (occurrence: CN)
  Receive Date: 20140827
  Receipt Date: 20140827
  Transmission Date: 20150326
  Serious: Yes (Disabling)
  Sender: FDA-Public Use
  Company Number: CN-PFIZER INC-2014235077

PATIENT
  Age: 47 Year
  Sex: Male
  Weight: 65 kg

DRUGS (5)
  1. VFEND [Suspect]
     Active Substance: VORICONAZOLE
     Indication: PNEUMONIA FUNGAL
     Dosage: 200 MG, 2X/DAY
     Route: 048
     Dates: start: 20131216, end: 20131222
  2. VFEND [Suspect]
     Active Substance: VORICONAZOLE
     Indication: PNEUMONIA FUNGAL
     Dosage: 200 MG, 2X/DAY
     Route: 041
     Dates: start: 20131212, end: 20131215
  3. SULFAMETHOXAZOLE [Suspect]
     Active Substance: SULFAMETHOXAZOLE
     Dosage: 2 TABLET Q8H
     Route: 048
     Dates: start: 20131219
  4. SULFAMETHOXAZOLE [Suspect]
     Active Substance: SULFAMETHOXAZOLE
     Indication: ANTIFUNGAL PROPHYLAXIS
     Dosage: 2 TABLETS Q8H
     Route: 048
     Dates: start: 20131202, end: 20131212
  5. SULFAMETHOXAZOLE [Suspect]
     Active Substance: SULFAMETHOXAZOLE
     Dosage: 3 TABLETS Q6H
     Route: 048
     Dates: start: 20131213, end: 20131218

REACTIONS (1)
  - Hepatocellular injury [Recovering/Resolving]

NARRATIVE: CASE EVENT DATE: 20131218
